FAERS Safety Report 20578464 (Version 1)
Quarter: 2022Q1

REPORT INFORMATION
  Report Type: Spontaneous
  Country: US (occurrence: None)
  Receive Date: 20220310
  Receipt Date: 20220310
  Transmission Date: 20220423
  Serious: No
  Sender: FDA-Public Use
  Company Number: US-PLXPHARMA-2021-PLX-00022

PATIENT
  Age: 35 Year
  Sex: Female

DRUGS (2)
  1. VAZALORE [Suspect]
     Active Substance: ASPIRIN
     Indication: Chest pain
     Route: 048
     Dates: start: 202111
  2. VAZALORE [Suspect]
     Active Substance: ASPIRIN
     Indication: Chest discomfort

REACTIONS (3)
  - Somnolence [Not Recovered/Not Resolved]
  - Loss of consciousness [Not Recovered/Not Resolved]
  - Dizziness [Not Recovered/Not Resolved]
